FAERS Safety Report 4733269-4 (Version None)
Quarter: 2005Q3

REPORT INFORMATION
  Report Type: 
  Country: None (occurrence: None)
  Receive Date: 20050803
  Receipt Date: 20050725
  Transmission Date: 20060218
  Serious: Yes (Hospitalization, Disabling)
  Sender: FDA-Public Use
  Company Number: GB-ROCHE-411918

PATIENT
  Age: 54 Year
  Sex: Female

DRUGS (4)
  1. ORLISTAT [Suspect]
     Indication: WEIGHT INCREASED
     Route: 048
     Dates: start: 20050515, end: 20050601
  2. ATENOLOL [Concomitant]
     Indication: BLOOD PRESSURE INCREASED
     Route: 048
  3. ASPIRIN [Concomitant]
     Route: 048
  4. HALOPERIDOL [Concomitant]

REACTIONS (1)
  - PSYCHOTIC DISORDER [None]
